FAERS Safety Report 8546126-2 (Version None)
Quarter: 2012Q3

REPORT INFORMATION
  Report Type: 
  Country: None (occurrence: None)
  Receive Date: 20120727
  Receipt Date: 20111209
  Transmission Date: 20120928
  Serious: No
  Sender: FDA-Public Use
  Company Number: US-ASTRAZENECA-2011SE74857

PATIENT
  Age: 65 Year
  Sex: Female
  Weight: 72.1 kg

DRUGS (5)
  1. SEROQUEL XR [Suspect]
     Indication: BIPOLAR DISORDER
     Route: 048
     Dates: start: 20090101
  2. ZOLOFT [Concomitant]
     Indication: WEIGHT INCREASED
  3. SEROQUEL XR [Suspect]
     Indication: DEPRESSION
     Route: 048
     Dates: start: 20090101
  4. CLONIDINE [Concomitant]
     Indication: CRYING
  5. CLONIDINE [Concomitant]
     Indication: INSOMNIA

REACTIONS (6)
  - FEELING ABNORMAL [None]
  - EMOTIONAL DISORDER [None]
  - DRUG DOSE OMISSION [None]
  - THINKING ABNORMAL [None]
  - WEIGHT INCREASED [None]
  - MUSCLE TWITCHING [None]
